FAERS Safety Report 11292916 (Version 2)
Quarter: 2019Q1

REPORT INFORMATION
  Report Type: Spontaneous
  Country: US (occurrence: US)
  Receive Date: 20150722
  Receipt Date: 20190221
  Transmission Date: 20190417
  Serious: No
  Sender: FDA-Public Use
  Company Number: US-ASTRAZENECA-2015SE68288

PATIENT
  Age: 700 Month
  Sex: Female
  Weight: 59 kg

DRUGS (9)
  1. VENTOLIN HFA [Concomitant]
     Active Substance: ALBUTEROL SULFATE
     Indication: ASTHMA
     Dosage: AS REQUIRED
  2. THEOPHYLLINE [Concomitant]
     Active Substance: THEOPHYLLINE ANHYDROUS
     Indication: ASTHMA
     Route: 048
  3. PREDNISONE. [Concomitant]
     Active Substance: PREDNISONE
  4. SYMBICORT [Suspect]
     Active Substance: BUDESONIDE\FORMOTEROL FUMARATE DIHYDRATE
     Indication: ASTHMA
     Dosage: 160 4.5, 2 PUFFS TWICE A DAY
     Route: 055
  5. ACTOLATE [Concomitant]
     Indication: DYSPNOEA
     Dosage: 20.0MG UNKNOWN
  6. EPIPEN [Concomitant]
     Active Substance: EPINEPHRINE
     Indication: ASTHMA
  7. DULERA [Concomitant]
     Active Substance: FORMOTEROL FUMARATE DIHYDRATE\MOMETASONE FUROATE
  8. SYMBICORT [Suspect]
     Active Substance: BUDESONIDE\FORMOTEROL FUMARATE DIHYDRATE
     Indication: ASTHMA
     Dosage: 160 4.5, 2 PUFFS TWICE A DAY
     Route: 055
  9. MUCINEX [Concomitant]
     Active Substance: GUAIFENESIN

REACTIONS (3)
  - Umbilical hernia [Unknown]
  - Discomfort [Unknown]
  - Cough [Unknown]

NARRATIVE: CASE EVENT DATE: 201812
